FAERS Safety Report 8856880 (Version 2)
Quarter: 2013Q4

REPORT INFORMATION
  Report Type: Spontaneous
  Country: US (occurrence: None)
  Receive Date: 20121019
  Receipt Date: 20131125
  Transmission Date: 20140711
  Serious: Yes (Hospitalization)
  Sender: FDA-Public Use
  Company Number: E2B_00000417

PATIENT
  Age: 76 Year
  Sex: Female

DRUGS (1)
  1. LISINOPRIL AND HYDROCHLOROTHIAZIDE [Suspect]
     Indication: HYPERTENSION
     Route: 048
     Dates: start: 20120715

REACTIONS (4)
  - Urinary tract infection [None]
  - Creatinine urine increased [None]
  - Anaemia [None]
  - Product substitution issue [None]
